FAERS Safety Report 7656633-2 (Version None)
Quarter: 2011Q3

REPORT INFORMATION
  Report Type: 
  Country: None (occurrence: None)
  Receive Date: 20110729
  Receipt Date: 20110719
  Transmission Date: 20111222
  Serious: Yes (Hospitalization)
  Sender: FDA-Public Use
  Company Number: JPI-P-015960

PATIENT
  Age: 62 Year
  Sex: Female
  Weight: 62.1428 kg

DRUGS (3)
  1. MULTIPLE UNSPECIFIED MEDICATIONS [Concomitant]
  2. XYREM [Suspect]
     Indication: CATAPLEXY
     Dosage: ORAL ; 6 GM (3 GM,2 IN 1 D),ORAL
     Route: 048
     Dates: start: 20030513
  3. FUROSEMIDE [Concomitant]

REACTIONS (2)
  - CARDIAC FAILURE CONGESTIVE [None]
  - OEDEMA PERIPHERAL [None]
